FAERS Safety Report 9197799 (Version 2)
Quarter: 2013Q2

REPORT INFORMATION
  Report Type: Spontaneous
  Country: US (occurrence: US)
  Receive Date: 20130328
  Receipt Date: 20130513
  Transmission Date: 20140414
  Serious: Yes (Other)
  Sender: FDA-Public Use
  Company Number: US-PFIZER INC-2013100205

PATIENT
  Age: 61 Year
  Sex: Female
  Weight: 68.03 kg

DRUGS (7)
  1. LYRICA [Suspect]
     Indication: FIBROMYALGIA
     Dosage: 100 MG, UNK
     Route: 048
  2. LYRICA [Suspect]
     Dosage: 100 MG, 5X/DAY
     Route: 048
  3. CYMBALTA [Concomitant]
     Dosage: UNK
     Dates: start: 2009
  4. SIMVASTATIN [Concomitant]
     Dosage: UNK
     Dates: start: 2009
  5. AMLODIPINE [Concomitant]
     Dosage: UNK
     Dates: start: 2009
  6. LOSARTAN [Concomitant]
     Dosage: UNK
     Dates: start: 2009
  7. METOPROLOL-ER [Concomitant]
     Dosage: UNK
     Dates: start: 2009

REACTIONS (3)
  - Sciatica [Unknown]
  - Upper limb fracture [Unknown]
  - Intentional drug misuse [Unknown]
